FAERS Safety Report 18348136 (Version 1)
Quarter: 2020Q4

REPORT INFORMATION
  Report Type: Spontaneous
  Country: US (occurrence: US)
  Receive Date: 20201005
  Receipt Date: 20201005
  Transmission Date: 20210114
  Serious: Yes (Other)
  Sender: FDA-Public Use
  Company Number: None

PATIENT
  Age: 24 Year
  Sex: Female
  Weight: 95 kg

DRUGS (6)
  1. BENZONATATE (TESSALON PERLES) CAPSULE 100 MG [Concomitant]
     Dates: start: 20201002
  2. ENOXAPARIN (LOVENOX) (CONC: 40 MG/ 0.4 ML) INJECTION 40 MG [Concomitant]
     Dates: start: 20201001
  3. PANTOPRAZOLE (PROTONIX) DR TABLET (DO NOT CRUSH/CHEW) 40 MG [Concomitant]
     Dates: start: 20201002
  4. REMDESIVIR. [Suspect]
     Active Substance: REMDESIVIR
     Indication: COVID-19
     Dates: start: 20201001, end: 20201005
  5. DEXAMETHASONE (DECADRON TABLET 6 MG [Concomitant]
     Dates: start: 20201002
  6. GUAIFENESIN 12 HR (MUCINEX) ER TABLET (DO NOT CRUSH/CHEW) 1,200 MG [Concomitant]
     Dates: start: 20201002

REACTIONS (1)
  - Infusion site urticaria [None]

NARRATIVE: CASE EVENT DATE: 20201005
